FAERS Safety Report 13758547 (Version 1)
Quarter: 2017Q3

REPORT INFORMATION
  Report Type: Spontaneous
  Country: FR (occurrence: FR)
  Receive Date: 20170717
  Receipt Date: 20170717
  Transmission Date: 20171127
  Serious: Yes (Hospitalization)
  Sender: FDA-Public Use
  Company Number: FR-ROCHE-1960255

PATIENT
  Age: 79 Year
  Sex: Female

DRUGS (13)
  1. PEGASYS [Suspect]
     Active Substance: PEGINTERFERON ALFA-2A
     Indication: ESSENTIAL THROMBOCYTHAEMIA
     Route: 057
     Dates: start: 201702, end: 20170612
  2. LERCANIDIPINE [Concomitant]
     Active Substance: LERCANIDIPINE
     Route: 065
  3. CRESTOR [Concomitant]
     Active Substance: ROSUVASTATIN CALCIUM
     Route: 065
  4. TEMERIT [Concomitant]
     Active Substance: NEBIVOLOL
     Route: 065
  5. NICORANDIL [Concomitant]
     Active Substance: NICORANDIL
  6. ADANCOR [Concomitant]
     Active Substance: NICORANDIL
     Route: 065
  7. HUMALOG [Concomitant]
     Active Substance: INSULIN LISPRO
     Dosage: 25100 IU/ML: 30 IU-0-20 IU
     Route: 065
  8. DIAFUSOR [Concomitant]
     Active Substance: NITROGLYCERIN
     Dosage: 1 PATCH PER DAY
     Route: 065
  9. RAMIPRIL. [Concomitant]
     Active Substance: RAMIPRIL
  10. DERMOVAL (FRANCE) [Concomitant]
  11. LASILIX [Concomitant]
     Active Substance: FUROSEMIDE
     Route: 065
  12. LEVOTHYROX [Concomitant]
     Active Substance: LEVOTHYROXINE
     Route: 065
  13. TRIATEC (FRANCE) [Concomitant]
     Active Substance: RAMIPRIL
     Route: 065

REACTIONS (5)
  - Rash maculo-papular [Recovering/Resolving]
  - Intentional product use issue [Unknown]
  - Toxic skin eruption [Recovering/Resolving]
  - Rash pruritic [Recovering/Resolving]
  - Off label use [Unknown]

NARRATIVE: CASE EVENT DATE: 20170607
